FAERS Safety Report 24749434 (Version 4)
Quarter: 2025Q3

REPORT INFORMATION
  Report Type: Report from Study
  Country: EU (occurrence: EU)
  Receive Date: 20241218
  Receipt Date: 20250926
  Transmission Date: 20251021
  Serious: Yes (Other)
  Sender: NOVARTIS
  Company Number: EU-002147023-NVSC2023IT277306

PATIENT
  Age: 73 Year
  Sex: Female
  Weight: 50 kg

DRUGS (2)
  1. COSENTYX [Suspect]
     Active Substance: SECUKINUMAB
     Indication: Psoriasis
     Dosage: 300 MG, QMO (EVERY 28 DAYS)
     Route: 065
     Dates: start: 20191023
  2. COSENTYX [Suspect]
     Active Substance: SECUKINUMAB
     Indication: Psoriatic arthropathy
     Dosage: 300 MG, QMO (EVERY 28 DAYS)
     Route: 058

REACTIONS (40)
  - Nephrolithiasis [Not Recovered/Not Resolved]
  - Cataract [Unknown]
  - Renal pain [Recovered/Resolved]
  - COVID-19 [Unknown]
  - Pain [Unknown]
  - Back pain [Recovered/Resolved]
  - Malaise [Unknown]
  - Fall [Unknown]
  - Dyspnoea [Unknown]
  - Neck pain [Unknown]
  - Tinnitus [Unknown]
  - Psoriasis [Unknown]
  - Disease recurrence [Unknown]
  - Musculoskeletal pain [Not Recovered/Not Resolved]
  - Osteoporosis [Not Recovered/Not Resolved]
  - Ligament sprain [Unknown]
  - Bone cyst [Not Recovered/Not Resolved]
  - Renal cyst [Not Recovered/Not Resolved]
  - Screaming [Unknown]
  - Hypertension [Unknown]
  - Memory impairment [Unknown]
  - Decreased appetite [Unknown]
  - Weight decreased [Unknown]
  - Joint swelling [Unknown]
  - Mass [Unknown]
  - Arthralgia [Unknown]
  - Finger deformity [Unknown]
  - Dyspepsia [Unknown]
  - Gluten sensitivity [Unknown]
  - Lactose intolerance [Unknown]
  - Fibromyalgia [Not Recovered/Not Resolved]
  - Pain in extremity [Unknown]
  - Renal pain [Unknown]
  - Gastroenteritis viral [Recovered/Resolved]
  - Vomiting [Recovered/Resolved]
  - Diarrhoea [Recovered/Resolved]
  - Asthenia [Recovered/Resolved]
  - Insomnia [Unknown]
  - Nasopharyngitis [Unknown]
  - Memory impairment [Unknown]

NARRATIVE: CASE EVENT DATE: 20230801
